FAERS Safety Report 21065462 (Version 1)
Quarter: 2022Q3

REPORT INFORMATION
  Report Type: Other
  Country: CA (occurrence: CA)
  Receive Date: 20220711
  Receipt Date: 20220711
  Transmission Date: 20221027
  Serious: Yes (Hospitalization, Other)
  Sender: FDA-Public Use
  Company Number: CA-ROCHE-3130029

PATIENT
  Age: 64 Year
  Sex: Male

DRUGS (7)
  1. XOLAIR [Suspect]
     Active Substance: OMALIZUMAB
     Indication: Chronic spontaneous urticaria
     Route: 058
     Dates: start: 20201022
  2. XOLAIR [Suspect]
     Active Substance: OMALIZUMAB
     Dosage: UNK
     Route: 065
     Dates: start: 20210518
  3. XOLAIR [Suspect]
     Active Substance: OMALIZUMAB
     Dosage: 300MG EVERY 4 WEEKS
     Route: 058
  4. CIPROFLOXACIN [Concomitant]
     Active Substance: CIPROFLOXACIN
  5. ATARAX [Concomitant]
     Active Substance: HYDROXYZINE HYDROCHLORIDE
     Indication: Product used for unknown indication
     Dosage: UNK
     Route: 048
  6. SINGULAIR [Concomitant]
     Active Substance: MONTELUKAST SODIUM
     Indication: Product used for unknown indication
     Dosage: UNK UNK QD
     Route: 048
  7. RUPATADINE FUMARATE [Concomitant]
     Active Substance: RUPATADINE FUMARATE
     Indication: Product used for unknown indication
     Dosage: UNK BID
     Route: 048

REACTIONS (14)
  - Urinary tract infection [Unknown]
  - Dysuria [Unknown]
  - Blood urine present [Unknown]
  - Blood pressure systolic increased [Unknown]
  - Prostatomegaly [Unknown]
  - Prostatitis [Unknown]
  - Rhinorrhoea [Unknown]
  - Cough [Unknown]
  - Influenza like illness [Recovered/Resolved]
  - Nasopharyngitis [Recovering/Resolving]
  - Wrong technique in product usage process [Unknown]
  - Urticaria [Unknown]
  - Feeling abnormal [Unknown]
  - Pruritus [Unknown]

NARRATIVE: CASE EVENT DATE: 20210610
